FAERS Safety Report 8213128-5 (Version None)
Quarter: 2012Q1

REPORT INFORMATION
  Report Type: 
  Country: None (occurrence: None)
  Receive Date: 20120315
  Receipt Date: 20120310
  Transmission Date: 20120608
  Serious: Yes (Hospitalization)
  Sender: FDA-Public Use
  Company Number: DE-ABBOTT-12P-062-0914043-00

PATIENT
  Sex: Female
  Weight: 67 kg

DRUGS (11)
  1. ABILIFY [Suspect]
     Indication: PRODUCT USED FOR UNKNOWN INDICATION
     Dosage: 30 MG ONCE
     Route: 048
     Dates: start: 20120310, end: 20120310
  2. DIAZEPAM [Suspect]
     Indication: PRODUCT USED FOR UNKNOWN INDICATION
     Dosage: 5 MG ONCE
     Route: 048
     Dates: start: 20120310, end: 20120310
  3. BENPERIDOL [Suspect]
     Indication: PRODUCT USED FOR UNKNOWN INDICATION
     Dosage: 2 MG ONCE
     Route: 048
     Dates: start: 20120310, end: 20120310
  4. RAMIPRIL [Suspect]
     Indication: PRODUCT USED FOR UNKNOWN INDICATION
     Dosage: 2.5 MG ONCE
     Route: 048
     Dates: start: 20120310, end: 20120310
  5. TORSEMIDE [Suspect]
     Indication: PRODUCT USED FOR UNKNOWN INDICATION
     Dosage: 100 MG ONCE
     Route: 048
     Dates: start: 20120310, end: 20120310
  6. BIPERIDEN HYDROCHLORIDE TAB [Suspect]
     Indication: PRODUCT USED FOR UNKNOWN INDICATION
     Route: 048
     Dates: start: 20120310, end: 20120310
  7. QUETIAPINE [Suspect]
     Indication: PRODUCT USED FOR UNKNOWN INDICATION
     Dosage: 300 MG ONCE
     Route: 048
     Dates: start: 20120310, end: 20120310
  8. METFORMIN HCL [Suspect]
     Indication: PRODUCT USED FOR UNKNOWN INDICATION
     Dosage: 100 MG ONCE
     Route: 048
     Dates: start: 20120310, end: 20120310
  9. HYDROCHLOROTHIAZIDE [Suspect]
     Indication: PRODUCT USED FOR UNKNOWN INDICATION
     Dosage: 12.5 MG ONCE
     Route: 048
     Dates: start: 20120310, end: 20120310
  10. AMPICILLIN AND SULBACTAM [Suspect]
     Indication: PRODUCT USED FOR UNKNOWN INDICATION
     Dosage: 750 MG ONCE
     Route: 048
     Dates: start: 20120310, end: 20120310
  11. CLARITHROMYCIN [Suspect]
     Indication: PRODUCT USED FOR UNKNOWN INDICATION
     Dosage: ONCE
     Route: 048
     Dates: start: 20120310, end: 20120310

REACTIONS (1)
  - TACHYCARDIA [None]
